FAERS Safety Report 8983668 (Version 2)
Quarter: 2013Q2

REPORT INFORMATION
  Report Type: Spontaneous
  Country: HU (occurrence: HU)
  Receive Date: 20121224
  Receipt Date: 20130520
  Transmission Date: 20140414
  Serious: Yes (Hospitalization, Other)
  Sender: FDA-Public Use
  Company Number: HU-BRISTOL-MYERS SQUIBB COMPANY-17212796

PATIENT
  Age: 32 Year
  Sex: Female

DRUGS (1)
  1. ABILIFY [Suspect]
     Indication: BIPOLAR DISORDER
     Route: 048
     Dates: start: 200905

REACTIONS (5)
  - Abortion threatened [Unknown]
  - Pre-eclampsia [Unknown]
  - Hypertonia [Unknown]
  - Pregnancy [Recovered/Resolved]
  - Live birth [Unknown]
